FAERS Safety Report 19392907 (Version 1)
Quarter: 2021Q2

REPORT INFORMATION
  Report Type: Spontaneous
  Country: FR (occurrence: FR)
  Receive Date: 20210609
  Receipt Date: 20210609
  Transmission Date: 20210717
  Serious: Yes (Disabling)
  Sender: FDA-Public Use
  Company Number: FR-AUROBINDO-AUR-APL-2021-023399

PATIENT
  Age: 20 Year
  Sex: Female
  Weight: 46 kg

DRUGS (5)
  1. SOLUPRED [Concomitant]
     Indication: PRODUCT USED FOR UNKNOWN INDICATION
     Dosage: UNK
     Route: 065
  2. PANTOPRAZOLE [Suspect]
     Active Substance: PANTOPRAZOLE
     Indication: ABDOMINAL PAIN UPPER
     Dosage: 1/DAY 3 TO 5 DAYS
     Route: 048
     Dates: start: 200211
  3. BREXIN [PIROXICAM BETADEX] [Suspect]
     Active Substance: PIROXICAM BETADEX
     Indication: PAIN
     Dosage: 1/DAY 3 TO 5 DAYS
     Route: 048
     Dates: start: 202011
  4. KEVZARA [Suspect]
     Active Substance: SARILUMAB
     Indication: RHEUMATOID ARTHRITIS
     Dosage: 200 MG, 2 WEEK
     Route: 065
     Dates: start: 20210308
  5. LEELOO [Suspect]
     Active Substance: ETHINYL ESTRADIOL\LEVONORGESTREL
     Indication: CONTRACEPTION
     Dosage: UNK UNK, ONCE A DAY
     Route: 048
     Dates: start: 201810

REACTIONS (7)
  - Mobility decreased [Recovered/Resolved]
  - Injection site oedema [Recovered/Resolved]
  - Injection site erythema [Unknown]
  - Injection site swelling [Recovered/Resolved]
  - Mouth ulceration [Not Recovered/Not Resolved]
  - Pain in extremity [Recovered/Resolved]
  - Aphthous ulcer [Not Recovered/Not Resolved]

NARRATIVE: CASE EVENT DATE: 20000507
